FAERS Safety Report 6100234-4 (Version None)
Quarter: 2009Q1

REPORT INFORMATION
  Report Type: 
  Country: None (occurrence: None)
  Receive Date: 20090226
  Receipt Date: 20090225
  Transmission Date: 20090719
  Serious: Yes (Hospitalization)
  Sender: FDA-Public Use
  Company Number: 2009-191819-NL

PATIENT
  Age: 52 Year
  Sex: Male

DRUGS (4)
  1. MIRTAZAPINE [Suspect]
     Dosage: 15 MG BID
     Route: 048
  2. PREGABALIN [Suspect]
     Dosage: 600 MG
     Route: 048
     Dates: start: 20090122
  3. LAMALINE /OLD FORM/ [Suspect]
     Dosage: 3 DF
  4. FENTANYL [Suspect]
     Dosage: 50 UG

REACTIONS (5)
  - CONVULSION [None]
  - GAMMA-GLUTAMYLTRANSFERASE INCREASED [None]
  - HUMERUS FRACTURE [None]
  - TRANSAMINASES INCREASED [None]
  - VOMITING [None]
